FAERS Safety Report 5662124-0 (Version None)
Quarter: 2008Q1

REPORT INFORMATION
  Report Type: 
  Country: None (occurrence: None)
  Receive Date: 20080312
  Receipt Date: 20080310
  Transmission Date: 20080703
  Serious: Yes (Death)
  Sender: FDA-Public Use
  Company Number: CH-ALLERGAN-0802187US

PATIENT
  Sex: Female
  Weight: 16 kg

DRUGS (5)
  1. BOTOX LYOPHILISAT [Suspect]
     Indication: MUSCLE SPASTICITY
     Dosage: 400 UNITS, SINGLE
     Route: 030
     Dates: start: 20080221, end: 20080221
  2. BOTOX LYOPHILISAT [Suspect]
     Indication: CEREBRAL PALSY
  3. DORMICUM [Concomitant]
     Indication: GENERAL ANAESTHESIA
     Dosage: 5 MG, SINGLE
     Route: 048
     Dates: start: 20080221, end: 20080221
  4. FENTANYL [Concomitant]
     Indication: GENERAL ANAESTHESIA
     Dosage: 15 UG, SINGLE
     Route: 042
     Dates: start: 20080221, end: 20080221
  5. DISOPRIVAN [Concomitant]
     Indication: GENERAL ANAESTHESIA
     Dosage: 10 MG, SINGLE
     Route: 042
     Dates: start: 20080221, end: 20080221

REACTIONS (1)
  - SUDDEN DEATH [None]
